FAERS Safety Report 9006060 (Version 1)
Quarter: 2013Q1

REPORT INFORMATION
  Report Type: Spontaneous
  Country: FR (occurrence: FR)
  Receive Date: 20130109
  Receipt Date: 20130109
  Transmission Date: 20140127
  Serious: Yes (Hospitalization)
  Sender: FDA-Public Use
  Company Number: PHHY2012FR118751

PATIENT
  Sex: 0

DRUGS (5)
  1. RASILEZ [Suspect]
     Indication: HYPERTENSION
     Dosage: 300 MG, QD
     Route: 048
     Dates: start: 20111105, end: 20121001
  2. ACEBUTOLOL [Concomitant]
     Indication: HYPERTENSION
     Dosage: 200 MG, QD
     Route: 048
     Dates: start: 2011
  3. LASILIX [Concomitant]
     Indication: RENAL FAILURE CHRONIC
     Dosage: 40 MG, QD
     Route: 048
     Dates: start: 2011
  4. KAYEXALATE [Concomitant]
     Indication: HYPERKALAEMIA
     Dosage: 12.5 G, QD
     Route: 048
     Dates: start: 2011
  5. ARANESP [Concomitant]
     Indication: ANAEMIA
     Dosage: 20 UG, QW
     Route: 058
     Dates: start: 2011

REACTIONS (4)
  - Fatigue [Recovering/Resolving]
  - Renal impairment [Recovered/Resolved]
  - Urine output decreased [Recovering/Resolving]
  - Blood creatinine increased [Recovering/Resolving]
